FAERS Safety Report 7224783-0 (Version None)
Quarter: 2011Q1

REPORT INFORMATION
  Report Type: 
  Country: None (occurrence: None)
  Receive Date: 20110103
  Receipt Date: 20101220
  Transmission Date: 20110831
  Serious: Yes (Hospitalization, Other)
  Sender: FDA-Public Use
  Company Number: DSJ-2010-22479

PATIENT
  Age: 57 Year
  Sex: Female

DRUGS (3)
  1. BENICAR HCT [Suspect]
     Indication: HYPERTENSION
     Dosage: 40/25 MG (1 IN 1 D), PER ORAL
     Route: 048
     Dates: start: 20090101, end: 20101218
  2. MEDICINE FOR STOMACH DISORDER [Concomitant]
  3. MEDICINE FOR DEPRESSION [Concomitant]

REACTIONS (2)
  - CARTILAGE INJURY [None]
  - BLOOD PRESSURE INCREASED [None]
